FAERS Safety Report 5556220-6 (Version None)
Quarter: 2007Q4

REPORT INFORMATION
  Report Type: 
  Country: None (occurrence: None)
  Receive Date: 20071207
  Receipt Date: 20071126
  Transmission Date: 20080405
  Serious: Yes (Hospitalization)
  Sender: FDA-Public Use
  Company Number: B0497561A

PATIENT
  Age: 74 Year
  Sex: Female

DRUGS (1)
  1. VALACYCLOVIR [Suspect]
     Indication: HERPES ZOSTER
     Dosage: 1000 MG, PER DAY; ORAL
     Route: 048

REACTIONS (4)
  - DIALYSIS [None]
  - DYSARTHRIA [None]
  - ENCEPHALOPATHY [None]
  - HALLUCINATION [None]
